FAERS Safety Report 23774513 (Version 2)
Quarter: 2024Q2

REPORT INFORMATION
  Report Type: Spontaneous
  Country: JP (occurrence: JP)
  Receive Date: 20240423
  Receipt Date: 20240513
  Transmission Date: 20240715
  Serious: Yes (Life-Threatening, Hospitalization, Other)
  Sender: FDA-Public Use
  Company Number: JP-TEVA-VS-3186652

PATIENT
  Age: 49 Year
  Sex: Female

DRUGS (2)
  1. CARBOPLATIN [Suspect]
     Active Substance: CARBOPLATIN
     Indication: Lung adenocarcinoma stage II
     Dosage: RECEIVED 2 COURSES OF TREATMENT
     Route: 065
  2. PACLITAXEL [Suspect]
     Active Substance: PACLITAXEL
     Indication: Lung adenocarcinoma stage II
     Dosage: RECEIVED 2 COURSES OF TREATMENT
     Route: 065

REACTIONS (1)
  - Dysaesthesia [Unknown]
